FAERS Safety Report 9879252 (Version 2)
Quarter: 2014Q1

REPORT INFORMATION
  Report Type: Spontaneous
  Country: US (occurrence: US)
  Receive Date: 20140206
  Receipt Date: 20140206
  Transmission Date: 20141002
  Serious: No
  Sender: FDA-Public Use
  Company Number: US-ALLERGAN-1314051US

PATIENT
  Age: 64 Year
  Sex: Female

DRUGS (2)
  1. BOTOX COSMETIC [Suspect]
     Indication: SKIN WRINKLING
     Dosage: 20 UNITS, SINGLE
     Route: 030
     Dates: start: 20130911, end: 20130911
  2. BOTOX COSMETIC [Suspect]
     Dosage: UNK
     Dates: start: 201212, end: 201212

REACTIONS (3)
  - Dysphonia [Not Recovered/Not Resolved]
  - Choking sensation [Not Recovered/Not Resolved]
  - Dysphagia [Not Recovered/Not Resolved]
